FAERS Safety Report 8117729-4 (Version None)
Quarter: 2011Q4

REPORT INFORMATION
  Report Type: 
  Country: None (occurrence: None)
  Receive Date: 20111227
  Receipt Date: 20101221
  Transmission Date: 20120403
  Serious: Yes (Other)
  Sender: FDA-Public Use
  Company Number: PHEH2009US15340

PATIENT
  Age: 69 Year
  Sex: Female
  Weight: 68.5 kg

DRUGS (2)
  1. FEMARA [Suspect]
     Indication: BREAST CANCER METASTATIC
     Dosage: 2.5 MG, QD, ORAL
     Route: 048
     Dates: start: 20090914, end: 20100901
  2. ZOMETA [Suspect]

REACTIONS (7)
  - SPEECH DISORDER [None]
  - RECURRENT CANCER [None]
  - PAIN [None]
  - FEELING ABNORMAL [None]
  - HYPOAESTHESIA [None]
  - DRUG INEFFECTIVE [None]
  - ACTIVITIES OF DAILY LIVING IMPAIRED [None]
